FAERS Safety Report 8231459-X (Version None)
Quarter: 2012Q1

REPORT INFORMATION
  Report Type: 
  Country: None (occurrence: None)
  Receive Date: 20120323
  Receipt Date: 20120321
  Transmission Date: 20120608
  Serious: Yes (Death)
  Sender: FDA-Public Use
  Company Number: US-B.I. PHARMACEUTICALS,INC./RIDGEFIELD-2010-BP-06320BP

PATIENT
  Sex: Female

DRUGS (2)
  1. MIRAPEX [Suspect]
     Indication: RESTLESS LEGS SYNDROME
     Dates: start: 20040610
  2. PERMAX [Concomitant]
     Indication: RESTLESS LEGS SYNDROME
     Dates: start: 20040701

REACTIONS (6)
  - TOXICITY TO VARIOUS AGENTS [None]
  - INTENTIONAL OVERDOSE [None]
  - PAIN [None]
  - OBSESSIVE-COMPULSIVE DISORDER [None]
  - EMOTIONAL DISTRESS [None]
  - PATHOLOGICAL GAMBLING [None]
